FAERS Safety Report 14006400 (Version 1)
Quarter: 2017Q3

REPORT INFORMATION
  Report Type: Spontaneous
  Country: US (occurrence: US)
  Receive Date: 20170925
  Receipt Date: 20170925
  Transmission Date: 20171128
  Serious: Yes (Hospitalization)
  Sender: FDA-Public Use
  Company Number: US-BEH-2017083709

PATIENT
  Sex: Male
  Weight: 111.11 kg

DRUGS (34)
  1. XANAX [Concomitant]
     Active Substance: ALPRAZOLAM
  2. FENTANYL. [Concomitant]
     Active Substance: FENTANYL
  3. NEXIUM [Concomitant]
     Active Substance: ESOMEPRAZOLE MAGNESIUM
  4. HYDROCODONE W/APAP                 /00607101/ [Concomitant]
  5. PRIVIGEN [Suspect]
     Active Substance: HUMAN IMMUNOGLOBULIN G
     Dosage: UNK
     Route: 042
  6. DUREZOL [Concomitant]
     Active Substance: DIFLUPREDNATE
  7. SODIUM CHLORIDE. [Concomitant]
     Active Substance: SODIUM CHLORIDE
  8. VITAMIN D3 [Concomitant]
     Active Substance: CHOLECALCIFEROL
  9. CARDIZEM CD [Concomitant]
     Active Substance: DILTIAZEM HYDROCHLORIDE
  10. PRIVIGEN [Suspect]
     Active Substance: HUMAN IMMUNOGLOBULIN G
     Indication: IMMUNODEFICIENCY COMMON VARIABLE
     Dosage: 35 G, QMT
     Route: 042
     Dates: start: 20160517
  11. PREDNISONE. [Concomitant]
     Active Substance: PREDNISONE
  12. NEPAFENAC [Concomitant]
     Active Substance: NEPAFENAC
  13. ACTEMRA [Concomitant]
     Active Substance: TOCILIZUMAB
  14. VALSARTAN. [Concomitant]
     Active Substance: VALSARTAN
  15. DYMISTA [Concomitant]
     Active Substance: AZELASTINE HYDROCHLORIDE\FLUTICASONE PROPIONATE
  16. RESTASIS [Concomitant]
     Active Substance: CYCLOSPORINE
  17. PRIVIGEN [Suspect]
     Active Substance: HUMAN IMMUNOGLOBULIN G
     Indication: HYPOGAMMAGLOBULINAEMIA
     Dosage: UNK
     Route: 042
  18. VIGAMOX [Concomitant]
     Active Substance: MOXIFLOXACIN HYDROCHLORIDE
  19. SIMVASTATIN. [Concomitant]
     Active Substance: SIMVASTATIN
  20. ABILIFY [Concomitant]
     Active Substance: ARIPIPRAZOLE
  21. PRIVIGEN [Suspect]
     Active Substance: HUMAN IMMUNOGLOBULIN G
     Dosage: UNK
     Route: 042
  22. FISH OIL [Concomitant]
     Active Substance: FISH OIL
  23. TRICOR                             /00090101/ [Concomitant]
     Active Substance: ADENOSINE
  24. GABAPENTIN. [Concomitant]
     Active Substance: GABAPENTIN
  25. ACETAMINOPHEN. [Concomitant]
     Active Substance: ACETAMINOPHEN
  26. PROVIGIL [Concomitant]
     Active Substance: MODAFINIL
  27. METHOTREXATE. [Concomitant]
     Active Substance: METHOTREXATE
  28. CYMBALTA [Concomitant]
     Active Substance: DULOXETINE HYDROCHLORIDE
  29. SINGULAIR [Concomitant]
     Active Substance: MONTELUKAST SODIUM
  30. AVODART [Concomitant]
     Active Substance: DUTASTERIDE
  31. TIZANIDINE. [Concomitant]
     Active Substance: TIZANIDINE
  32. DIPHENHYDRAMINE. [Concomitant]
     Active Substance: DIPHENHYDRAMINE
  33. EPINEPHRINE. [Concomitant]
     Active Substance: EPINEPHRINE
  34. TEMAZEPAM. [Concomitant]
     Active Substance: TEMAZEPAM

REACTIONS (2)
  - Transient ischaemic attack [Unknown]
  - Gastroenteritis viral [Unknown]
